FAERS Safety Report 8530648 (Version 3)
Quarter: 2014Q2

REPORT INFORMATION
  Report Type: Report from Study
  Country: IE (occurrence: IE)
  Receive Date: 20120425
  Receipt Date: 20140620
  Transmission Date: 20141212
  Serious: Yes (Hospitalization)
  Sender: FDA-Public Use
  Company Number: IE-TEVA-334741USA

PATIENT
  Age: 65 Year
  Sex: Male
  Weight: 93.1 kg

DRUGS (17)
  1. TREANDA [Suspect]
     Indication: NON-HODGKIN^S LYMPHOMA
     Route: 042
     Dates: start: 20120202, end: 20120423
  2. RITUXIMAB [Suspect]
     Indication: NON-HODGKIN^S LYMPHOMA
     Route: 042
     Dates: start: 20120202, end: 20120423
  3. PREDNISOLONE [Suspect]
     Indication: LYMPHOMA
     Dosage: 10 MILLIGRAM DAILY;
     Route: 048
     Dates: start: 20111114, end: 20120328
  4. PREDNISOLONE [Suspect]
     Indication: CHRONIC OBSTRUCTIVE PULMONARY DISEASE
  5. HEPARIN-FRACTION, SODIUM SALT [Concomitant]
     Indication: PULMONARY EMBOLISM
     Dates: start: 20110509, end: 20120405
  6. TAMSULOSIN [Concomitant]
     Indication: LOWER URINARY TRACT SYMPTOMS
     Dates: start: 20110810
  7. ESOMEPRAZOLE [Concomitant]
     Indication: DYSPEPSIA
     Dosage: 40 MILLIGRAM DAILY;
     Dates: start: 20111114
  8. ALLOPURINOL [Concomitant]
     Indication: PROPHYLAXIS
     Route: 048
     Dates: start: 20091209
  9. OXYCONTIN [Concomitant]
     Indication: BACK PAIN
     Dosage: 20 MILLIGRAM DAILY;
     Dates: start: 20120323
  10. LIDOCAINE [Concomitant]
     Indication: BACK PAIN
     Dates: start: 20120323
  11. CARDICOR [Concomitant]
     Indication: TACHYCARDIA
     Dosage: 1.25 MILLIGRAM DAILY;
     Dates: start: 20120301
  12. LYRICA [Concomitant]
     Indication: BACK PAIN
     Dosage: 100 MILLIGRAM DAILY;
     Dates: start: 20120326, end: 20120402
  13. OXINORM [Concomitant]
     Dates: start: 20120323
  14. CALCICHEW [Concomitant]
     Dates: start: 20120323
  15. MOTILIUM-M [Concomitant]
     Dates: start: 20120324, end: 20120401
  16. MOVICOL [Concomitant]
     Dates: start: 20120324, end: 20120402
  17. PARACETAMOL [Concomitant]
     Dates: start: 20120323

REACTIONS (1)
  - Pneumonitis [Recovered/Resolved]
